FAERS Safety Report 5145813-6 (Version None)
Quarter: 2006Q4

REPORT INFORMATION
  Report Type: 
  Country: None (occurrence: None)
  Receive Date: 20061108
  Receipt Date: 20061031
  Transmission Date: 20070319
  Serious: Yes (Hospitalization)
  Sender: FDA-Public Use
  Company Number: US-JNJFOC-20061100641

PATIENT
  Sex: Male
  Weight: 117.94 kg

DRUGS (2)
  1. REMICADE [Suspect]
     Indication: RHEUMATOID ARTHRITIS
     Route: 042
  2. UNSPECIFIED MEDICATION [Concomitant]

REACTIONS (2)
  - FLUID RETENTION [None]
  - OEDEMA PERIPHERAL [None]
